FAERS Safety Report 12884479 (Version 1)
Quarter: 2016Q4

REPORT INFORMATION
  Report Type: Spontaneous
  Country: US (occurrence: US)
  Receive Date: 20161024
  Receipt Date: 20161024
  Transmission Date: 20170207
  Serious: No
  Sender: FDA-Public Use
  Company Number: None

PATIENT
  Age: 55 Year
  Sex: Female

DRUGS (2)
  1. COPAXONE [Suspect]
     Active Substance: GLATIRAMER ACETATE
     Indication: SLEEP DISORDER
  2. COPAXONE [Suspect]
     Active Substance: GLATIRAMER ACETATE
     Indication: PREGNANCY

REACTIONS (5)
  - Fatigue [None]
  - Drug dose omission [None]
  - Anxiety [None]
  - Urinary incontinence [None]
  - Paraesthesia [None]

NARRATIVE: CASE EVENT DATE: 20161024
